FAERS Safety Report 5896919-5 (Version None)
Quarter: 2008Q3

REPORT INFORMATION
  Report Type: 
  Country: None (occurrence: None)
  Receive Date: 20080923
  Receipt Date: 20080908
  Transmission Date: 20090109
  Serious: Yes (Death, Life-Threatening, Hospitalization)
  Sender: FDA-Public Use
  Company Number: KADN20080351

PATIENT
  Age: 51 Year
  Sex: Female

DRUGS (6)
  1. MORPHINE [Suspect]
     Dosage: ORAL
     Route: 048
     Dates: start: 20050101, end: 20050101
  2. DIAZEPAM [Suspect]
     Dosage: ORAL
     Route: 048
     Dates: start: 20050101, end: 20050101
  3. TRICYCLIC ANTIDEPRESSANT [Suspect]
     Dosage: ORAL
     Route: 048
     Dates: start: 20050101, end: 20050101
  4. ETHANOL [Suspect]
     Dosage: ORAL
     Route: 048
     Dates: end: 20050101
  5. DIURETIC [Concomitant]
  6. ANTIHISTAMINE [Concomitant]

REACTIONS (17)
  - BLOOD CREATINE PHOSPHOKINASE INCREASED [None]
  - BLOOD ETHANOL INCREASED [None]
  - BLOOD PH DECREASED [None]
  - COMA [None]
  - COMPLETED SUICIDE [None]
  - DRUG TOXICITY [None]
  - HAEMODIALYSIS [None]
  - HYPOTENSION [None]
  - INTERNATIONAL NORMALISED RATIO INCREASED [None]
  - MULTI-ORGAN FAILURE [None]
  - RENAL FAILURE [None]
  - RESPIRATORY ARREST [None]
  - SKIN DISCOLOURATION [None]
  - TACHYCARDIA [None]
  - THROMBOCYTOPENIA [None]
  - TRANSAMINASES INCREASED [None]
  - UNRESPONSIVE TO STIMULI [None]
